FAERS Safety Report 7362179-1 (Version None)
Quarter: 2011Q1

REPORT INFORMATION
  Report Type: 
  Country: None (occurrence: None)
  Receive Date: 20110315
  Receipt Date: 20110315
  Transmission Date: 20110831
  Serious: Yes (Other)
  Sender: FDA-Public Use
  Company Number: None

PATIENT
  Age: 46 Year
  Sex: Female
  Weight: 74.8435 kg

DRUGS (1)
  1. VENLAFAXINE [Suspect]
     Indication: DEPRESSION
     Dosage: 75 MG 1 TIME PER DAY PO
     Route: 048
     Dates: start: 20070715, end: 20101101

REACTIONS (7)
  - CONVULSION [None]
  - ANXIETY [None]
  - MOOD SWINGS [None]
  - DEPRESSION [None]
  - PARAESTHESIA [None]
  - DRUG WITHDRAWAL SYNDROME [None]
  - ANGER [None]
